FAERS Safety Report 5447313-2 (Version None)
Quarter: 2007Q3

REPORT INFORMATION
  Report Type: 
  Country: None (occurrence: None)
  Receive Date: 20070905
  Receipt Date: 20070905
  Transmission Date: 20080115
  Serious: Yes (Other)
  Sender: FDA-Public Use
  Company Number: None

PATIENT
  Age: 63 Year
  Sex: Female
  Weight: 72.5755 kg

DRUGS (1)
  1. PULMICORT FLEXHALER [Suspect]
     Indication: ASTHMA
     Dosage: 2 INHALATIONS TWICE DAILY PO
     Route: 048

REACTIONS (9)
  - ASTHMA [None]
  - CHEST PAIN [None]
  - COUGH [None]
  - DEVICE MALFUNCTION [None]
  - DRUG EFFECT DECREASED [None]
  - FEAR [None]
  - FUNGAL INFECTION [None]
  - MEDICATION TAMPERING [None]
  - NASAL CONGESTION [None]
